FAERS Safety Report 4996485-2 (Version None)
Quarter: 2006Q2

REPORT INFORMATION
  Report Type: 
  Country: None (occurrence: None)
  Receive Date: 20060505
  Receipt Date: 20060504
  Transmission Date: 20061013
  Serious: Yes (Other)
  Sender: FDA-Public Use
  Company Number: HQWYE153803MAY06

PATIENT
  Age: 40 Year
  Sex: Female

DRUGS (3)
  1. EFFEXOR [Suspect]
     Indication: BIPOLAR DISORDER
     Dosage: 75 MG 1X PER 1 DAY ORAL
     Route: 048
     Dates: start: 20040101
  2. PRIMIDONE [Concomitant]
  3. CLONAZEPAM [Concomitant]

REACTIONS (5)
  - BREAST DYSPLASIA [None]
  - CONDITION AGGRAVATED [None]
  - CONVULSION [None]
  - FIBROCYSTIC BREAST DISEASE [None]
  - WEIGHT INCREASED [None]
